FAERS Safety Report 14556048 (Version 1)
Quarter: 2018Q1

REPORT INFORMATION
  Report Type: Spontaneous
  Country: JP (occurrence: JP)
  Receive Date: 20180221
  Receipt Date: 20180221
  Transmission Date: 20180509
  Serious: Yes (Other)
  Sender: FDA-Public Use
  Company Number: JP-ACCORD-063704

PATIENT
  Age: 66 Year
  Sex: Male

DRUGS (2)
  1. CAPECITABINE. [Suspect]
     Active Substance: CAPECITABINE
     Indication: COLON CANCER
     Dosage: INITIALLY DOSE REDUCED 80% THEN WITHDRAWN
     Route: 048
  2. OXALIPLATIN. [Suspect]
     Active Substance: OXALIPLATIN
     Indication: COLON CANCER

REACTIONS (4)
  - Respiratory distress [Recovered/Resolved]
  - Neuropathy peripheral [Unknown]
  - Phrenic nerve paralysis [Recovered/Resolved]
  - Cough [Recovered/Resolved]
